FAERS Safety Report 6593409-1 (Version None)
Quarter: 2010Q1

REPORT INFORMATION
  Report Type: 
  Country: None (occurrence: None)
  Receive Date: 20100222
  Receipt Date: 20091221
  Transmission Date: 20100710
  Serious: No
  Sender: FDA-Public Use
  Company Number: US-BRISTOL-MYERS SQUIBB COMPANY-14573828

PATIENT
  Age: 34 Year
  Sex: Female

DRUGS (8)
  1. ORENCIA [Suspect]
     Indication: RHEUMATOID ARTHRITIS
     Dosage: LAST INFUSION WAS MAR2009.
     Route: 042
     Dates: start: 20061031
  2. LEVOXYL [Concomitant]
  3. ATENOLOL [Concomitant]
  4. ZYRTEC [Concomitant]
  5. PENLAC [Concomitant]
  6. METHOTREXATE [Concomitant]
     Dates: start: 19960101
  7. FOLIC ACID [Concomitant]
     Dates: start: 19960101
  8. HYDROXYCHLOROQUINE [Concomitant]
     Dosage: MONDAY-SATURDAY
     Dates: start: 20060301

REACTIONS (1)
  - PREGNANCY [None]
